FAERS Safety Report 5120518-6 (Version None)
Quarter: 2006Q4

REPORT INFORMATION
  Report Type: 
  Country: None (occurrence: None)
  Receive Date: 20061002
  Receipt Date: 20060918
  Transmission Date: 20070319
  Serious: Yes (Death)
  Sender: FDA-Public Use
  Company Number: MC200600448

PATIENT
  Age: 82 Year
  Sex: Female
  Weight: 77 kg

DRUGS (4)
  1. ANGIOMAX [Suspect]
     Dosage: 57.75 MG BOLUS, IV BOLUS
     Route: 040
     Dates: start: 20060203, end: 20060203
  2. CARDEGIC (ACETYLSLICYLATE LYSINE) [Concomitant]
  3. CLOPIDOGREL [Concomitant]
  4. LASIX [Concomitant]

REACTIONS (1)
  - SUDDEN DEATH [None]
